FAERS Safety Report 6296104-1 (Version None)
Quarter: 2009Q3

REPORT INFORMATION
  Report Type: 
  Country: None (occurrence: None)
  Receive Date: 20090804
  Receipt Date: 20090724
  Transmission Date: 20100115
  Serious: Yes (Hospitalization)
  Sender: FDA-Public Use
  Company Number: NL-BAYER-200926894GPV

PATIENT
  Age: 59 Year
  Sex: Male
  Weight: 82 kg

DRUGS (11)
  1. FLUDARABINE PHOSPHATE [Suspect]
     Indication: CHRONIC LYMPHOCYTIC LEUKAEMIA
     Dosage: 2 CYCLES RECEIVED
     Route: 048
     Dates: start: 20090519, end: 20090616
  2. CYCLOPHOSPHAMIDE [Suspect]
     Indication: CHRONIC LYMPHOCYTIC LEUKAEMIA
     Dosage: 2 CYCLES RECEIVED
     Route: 048
     Dates: start: 20090519, end: 20090616
  3. ASCAL [Concomitant]
     Indication: CARDIOVASCULAR EVENT PROPHYLAXIS
     Route: 048
  4. HERDIP [Concomitant]
     Indication: CARDIOVASCULAR EVENT PROPHYLAXIS
     Route: 048
  5. BISOPROLOL [Concomitant]
     Indication: CARDIOVASCULAR EVENT PROPHYLAXIS
     Route: 048
  6. SIMVASTATIN [Concomitant]
     Indication: CARDIOVASCULAR EVENT PROPHYLAXIS
     Route: 048
  7. PERINDOPRIL [Concomitant]
     Indication: CARDIOVASCULAR EVENT PROPHYLAXIS
     Route: 048
  8. METFORMIN [Concomitant]
     Indication: TYPE 2 DIABETES MELLITUS
     Route: 048
  9. GLIDAZIDE [Concomitant]
     Indication: TYPE 2 DIABETES MELLITUS
     Route: 048
  10. COVERSYL PLUS [Concomitant]
     Indication: BLOOD PRESSURE MANAGEMENT
     Route: 048
  11. COTRIM [Concomitant]
     Route: 048
     Dates: start: 20090519

REACTIONS (3)
  - ANGINA UNSTABLE [None]
  - HAEMOGLOBIN DECREASED [None]
  - HAEMOLYSIS [None]
